FAERS Safety Report 6034310-1 (Version None)
Quarter: 2009Q1

REPORT INFORMATION
  Report Type: 
  Country: None (occurrence: None)
  Receive Date: 20090108
  Receipt Date: 20081230
  Transmission Date: 20090719
  Serious: Yes (Other)
  Sender: FDA-Public Use
  Company Number: 08-002054

PATIENT
  Age: 56 Year
  Sex: Female
  Weight: 90.7 kg

DRUGS (2)
  1. DORYX [Suspect]
     Indication: ACNE
     Dosage: ORAL
     Route: 048
     Dates: start: 20000101, end: 20050101
  2. DORYX [Suspect]
     Indication: POSTMENOPAUSE
     Dosage: ORAL
     Route: 048
     Dates: start: 20000101, end: 20050101

REACTIONS (5)
  - BLOOD CREATININE DECREASED [None]
  - BONE DISORDER [None]
  - BUNION OPERATION [None]
  - RENAL IMPAIRMENT [None]
  - TOOTH DISCOLOURATION [None]
